FAERS Safety Report 15248762 (Version 1)
Quarter: 2018Q3

REPORT INFORMATION
  Report Type: Report from Study
  Country: CL (occurrence: CL)
  Receive Date: 20180807
  Receipt Date: 20180807
  Transmission Date: 20181010
  Serious: Yes (Death, Hospitalization)
  Sender: FDA-Public Use
  Company Number: CL-UCBSA-2017023063

PATIENT
  Age: 71 Year
  Sex: Male

DRUGS (9)
  1. FOLIC ACID. [Concomitant]
     Active Substance: FOLIC ACID
     Indication: PRODUCT USED FOR UNKNOWN INDICATION
     Dosage: UNK
     Route: 048
     Dates: end: 20180521
  2. ROTIGOTINE [Suspect]
     Active Substance: ROTIGOTINE
     Dosage: 4 MG
     Route: 062
     Dates: start: 20160802, end: 201610
  3. ROTIGOTINE [Suspect]
     Active Substance: ROTIGOTINE
     Dosage: 6 MG
     Route: 062
     Dates: start: 201610, end: 201611
  4. ROTIGOTINE [Suspect]
     Active Substance: ROTIGOTINE
     Dosage: 4 MG
     Route: 062
     Dates: start: 201611, end: 201702
  5. ROTIGOTINE [Suspect]
     Active Substance: ROTIGOTINE
     Dosage: 4 MG
     Route: 062
     Dates: start: 201703, end: 20170915
  6. FERROUS SULFATE. [Concomitant]
     Active Substance: FERROUS SULFATE
     Indication: PRODUCT USED FOR UNKNOWN INDICATION
     Dosage: UNK
     Route: 048
     Dates: end: 20180521
  7. ROTIGOTINE [Suspect]
     Active Substance: ROTIGOTINE
     Dosage: 4 MG, ONCE DAILY (QD)
     Route: 062
     Dates: start: 201712, end: 201802
  8. ROTIGOTINE [Suspect]
     Active Substance: ROTIGOTINE
     Indication: PARKINSON^S DISEASE
     Dosage: 8 MG
     Route: 062
     Dates: start: 201604, end: 201605
  9. ROTIGOTINE [Suspect]
     Active Substance: ROTIGOTINE
     Dosage: 8 MG
     Route: 062
     Dates: start: 201702, end: 201703

REACTIONS (10)
  - Dysphagia [Fatal]
  - Urinary incontinence [Unknown]
  - Musculoskeletal stiffness [Unknown]
  - Ulcer [Recovering/Resolving]
  - Weight decreased [Recovering/Resolving]
  - General physical health deterioration [Fatal]
  - Asthenia [Fatal]
  - Decreased appetite [Unknown]
  - Skin injury [Unknown]
  - Pain [Unknown]

NARRATIVE: CASE EVENT DATE: 201703
